FAERS Safety Report 19962460 (Version 2)
Quarter: 2021Q4

REPORT INFORMATION
  Report Type: Other
  Country: US (occurrence: None)
  Receive Date: 20211018
  Receipt Date: 20211216
  Transmission Date: 20220303
  Serious: Yes (Other)
  Sender: FDA-Public Use
  Company Number: US-ROCHE-2862910

PATIENT
  Sex: Female
  Weight: 61.23 kg

DRUGS (8)
  1. OCREVUS [Suspect]
     Active Substance: OCRELIZUMAB
     Indication: Primary progressive multiple sclerosis
     Dosage: ON AUG/2016 OR 2017 STARTED OCREVUS?NEXT DOSES ON: 08/JUN/2020, 04/FEB/2021, 19/FEB/2021, 22/JUL/202
     Route: 041
  2. KLONOPIN [Suspect]
     Active Substance: CLONAZEPAM
     Indication: Muscle spasticity
     Route: 048
     Dates: start: 2016
  3. KLONOPIN [Suspect]
     Active Substance: CLONAZEPAM
     Indication: Insomnia
  4. DULOXETINE [Concomitant]
     Active Substance: DULOXETINE
     Indication: Depression
     Route: 048
     Dates: start: 2016
  5. ATORVASTATIN [Concomitant]
     Active Substance: ATORVASTATIN
     Indication: Blood cholesterol
     Route: 048
     Dates: start: 2019
  6. VITAMIN D3 [Concomitant]
     Active Substance: CHOLECALCIFEROL
     Indication: Multiple sclerosis
     Route: 048
     Dates: start: 2007, end: 2019
  7. VITAMIN D3 [Concomitant]
     Active Substance: CHOLECALCIFEROL
     Route: 048
     Dates: start: 2019, end: 202105
  8. VITAMIN D3 [Concomitant]
     Active Substance: CHOLECALCIFEROL
     Route: 048
     Dates: start: 202105

REACTIONS (11)
  - Osteoporosis [Not Recovered/Not Resolved]
  - Multiple sclerosis relapse [Not Recovered/Not Resolved]
  - Fall [Unknown]
  - Ligament injury [Unknown]
  - Tendon injury [Not Recovered/Not Resolved]
  - Vitamin D decreased [Unknown]
  - Off label use [Unknown]
  - Hypoacusis [Unknown]
  - Hypoaesthesia [Unknown]
  - Fine motor skill dysfunction [Unknown]
  - Cognitive disorder [Unknown]

NARRATIVE: CASE EVENT DATE: 20190101
